FAERS Safety Report 22641579 (Version 1)
Quarter: 2023Q2

REPORT INFORMATION
  Report Type: Spontaneous
  Country: DE (occurrence: DE)
  Receive Date: 20230626
  Receipt Date: 20230626
  Transmission Date: 20230722
  Serious: Yes (Hospitalization, Other)
  Sender: FDA-Public Use
  Company Number: DE-SAMSUNG BIOEPIS-SB-2023-16817

PATIENT
  Age: 60 Year
  Sex: Male
  Weight: 67.4 kg

DRUGS (6)
  1. ONTRUZANT [Suspect]
     Active Substance: TRASTUZUMAB-DTTB
     Indication: Product used for unknown indication
     Route: 065
     Dates: start: 20230425
  2. PEMBROLIZUMAB [Suspect]
     Active Substance: PEMBROLIZUMAB
     Indication: Product used for unknown indication
     Dosage: DOSE: 200
     Route: 065
     Dates: start: 20230425
  3. OXALIPLATIN [Suspect]
     Active Substance: OXALIPLATIN
     Indication: Product used for unknown indication
     Route: 065
     Dates: start: 20230425
  4. LEUCOVORIN [Suspect]
     Active Substance: LEUCOVORIN
     Indication: Product used for unknown indication
     Route: 065
     Dates: start: 20230425
  5. FLUOROURACIL [Suspect]
     Active Substance: FLUOROURACIL
     Indication: Product used for unknown indication
     Route: 065
     Dates: start: 20230425
  6. DOCETAXEL [Suspect]
     Active Substance: DOCETAXEL
     Indication: Product used for unknown indication
     Route: 065
     Dates: start: 20230425

REACTIONS (4)
  - C-reactive protein increased [Recovered/Resolved]
  - Pyrexia [Unknown]
  - Diarrhoea [Unknown]
  - Cholecystitis [Recovered/Resolved]

NARRATIVE: CASE EVENT DATE: 20230608
